FAERS Safety Report 10250387 (Version 1)
Quarter: 2014Q2

REPORT INFORMATION
  Report Type: Spontaneous
  Country: GB (occurrence: GB)
  Receive Date: 20140620
  Receipt Date: 20140620
  Transmission Date: 20141212
  Serious: Yes (Other)
  Sender: FDA-Public Use
  Company Number: GB-ACTAVIS-2014-13248

PATIENT
  Age: 27 Year
  Sex: Male
  Weight: 141 kg

DRUGS (3)
  1. OXYCODONE (UNKNOWN) [Suspect]
     Indication: INTERVERTEBRAL DISC DEGENERATION
     Dosage: 40MG EVERY 12 HOURS
     Route: 048
     Dates: start: 20140515
  2. FLUOXETINE [Concomitant]
     Indication: PRODUCT USED FOR UNKNOWN INDICATION
     Dosage: UNK
     Route: 065
  3. LORATADINE [Concomitant]
     Indication: PRODUCT USED FOR UNKNOWN INDICATION
     Dosage: UNK
     Route: 065

REACTIONS (6)
  - Dysuria [Not Recovered/Not Resolved]
  - Tension headache [Recovering/Resolving]
  - Eye pain [Unknown]
  - Vision blurred [Unknown]
  - Headache [Unknown]
  - Neck pain [Unknown]
